FAERS Safety Report 5648190-7 (Version None)
Quarter: 2008Q1

REPORT INFORMATION
  Report Type: 
  Country: None (occurrence: None)
  Receive Date: 20080304
  Receipt Date: 20080222
  Transmission Date: 20080703
  Serious: Yes (Death)
  Sender: FDA-Public Use
  Company Number: SE-NOVOPROD-269321

PATIENT
  Age: 45 Year
  Sex: Male

DRUGS (5)
  1. NORDITROPIN [Suspect]
     Indication: GROWTH HORMONE DEFICIENCY
     Dosage: .2 MG, QD
     Dates: start: 20031007
  2. NEBIDO                             /00103105/ [Concomitant]
     Dosage: 1000 MG, EVERY 14. WEEK
  3. MINIRIN [Concomitant]
     Dosage: UNK, UNK
     Route: 045
  4. LEVOTHYROXINE SODIUM [Concomitant]
  5. KARBAMAZEPIN [Concomitant]
     Dosage: 400 MG, QD

REACTIONS (1)
  - EPILEPSY [None]
